FAERS Safety Report 6385266-3 (Version None)
Quarter: 2009Q4

REPORT INFORMATION
  Report Type: 
  Country: None (occurrence: None)
  Receive Date: 20091002
  Receipt Date: 20080804
  Transmission Date: 20100525
  Serious: No
  Sender: FDA-Public Use
  Company Number: US-ASTRAZENECA-2008UW15936

PATIENT
  Age: 67 Year
  Sex: Female
  Weight: 96.6 kg

DRUGS (7)
  1. ARIMIDEX [Suspect]
     Indication: BREAST CANCER
     Route: 048
     Dates: start: 20071201
  2. CENTRUM SILVER [Concomitant]
  3. GLUCOSAMINE [Concomitant]
  4. MG 250 MG [Concomitant]
  5. PRILOSEC [Concomitant]
  6. LASIX [Concomitant]
  7. TYLENOL [Concomitant]

REACTIONS (1)
  - HAIR COLOUR CHANGES [None]
